APPROVED DRUG PRODUCT: HYDRALAZINE HYDROCHLORIDE AND HYDROCHLOROTHIAZIDE
Active Ingredient: HYDRALAZINE HYDROCHLORIDE; HYDROCHLOROTHIAZIDE
Strength: 50MG;50MG
Dosage Form/Route: CAPSULE;ORAL
Application: A089201 | Product #001
Applicant: SUPERPHARM CORP
Approved: Feb 9, 1987 | RLD: No | RS: No | Type: DISCN